FAERS Safety Report 7497196-4 (Version None)
Quarter: 2011Q2

REPORT INFORMATION
  Report Type: 
  Country: None (occurrence: None)
  Receive Date: 20110523
  Receipt Date: 20110512
  Transmission Date: 20111010
  Serious: Yes (Hospitalization)
  Sender: FDA-Public Use
  Company Number: KR-ASTRAZENECA-2011SE28065

PATIENT
  Age: 42 Year
  Sex: Male
  Weight: 85 kg

DRUGS (10)
  1. THIOPENTAL SODIUM [Concomitant]
     Indication: INDUCTION OF ANAESTHESIA
  2. VALPROATE SODIUM [Concomitant]
     Indication: CONVULSION
  3. SEVOFLURANE [Concomitant]
     Indication: MAINTENANCE OF ANAESTHESIA
     Dosage: 0.8-2 VOL %
  4. MANNITOL [Concomitant]
  5. OXYGEN [Concomitant]
     Indication: MAINTENANCE OF ANAESTHESIA
  6. NITROUS OXIDE [Concomitant]
     Indication: MAINTENANCE OF ANAESTHESIA
  7. PROPOFOL [Suspect]
     Indication: GENERAL ANAESTHESIA
     Dosage: 3.03.5G/ML
  8. GLYCOPYRROLATE [Concomitant]
     Indication: PREMEDICATION
  9. REMIFENTANIL [Suspect]
     Indication: GENERAL ANAESTHESIA
     Dosage: INFUSION RATE OF 0.05G/KG/MIN.
  10. ROCURONIUM BROMIDE [Concomitant]
     Indication: INDUCTION OF ANAESTHESIA

REACTIONS (2)
  - HYPERAMYLASAEMIA [None]
  - BRADYCARDIA [None]
